FAERS Safety Report 5722788-X (Version None)
Quarter: 2008Q2

REPORT INFORMATION
  Report Type: 
  Country: None (occurrence: None)
  Receive Date: 20080429
  Receipt Date: 20080110
  Transmission Date: 20081010
  Serious: No
  Sender: FDA-Public Use
  Company Number: US-ASTRAZENECA-2008UW00727

PATIENT
  Age: 59 Year
  Weight: 158.5 kg

DRUGS (1)
  1. NEXIUM [Suspect]
     Route: 048
     Dates: start: 20071201, end: 20080110

REACTIONS (5)
  - BLINDNESS [None]
  - NONSPECIFIC REACTION [None]
  - OEDEMA PERIPHERAL [None]
  - PAIN IN EXTREMITY [None]
  - VISION BLURRED [None]
